FAERS Safety Report 6308957-9 (Version None)
Quarter: 2009Q3

REPORT INFORMATION
  Report Type: 
  Country: None (occurrence: None)
  Receive Date: 20090813
  Receipt Date: 20090702
  Transmission Date: 20100115
  Serious: No
  Sender: FDA-Public Use
  Company Number: US-ALLERGAN-0909332US

PATIENT
  Age: 33 Year
  Sex: Male

DRUGS (1)
  1. COMBIGAN [Suspect]
     Indication: EYE INJURY
     Dosage: UNK, UNKNOWN
     Route: 047

REACTIONS (1)
  - EYE PAIN [None]
